FAERS Safety Report 4582352-5 (Version None)
Quarter: 2005Q1

REPORT INFORMATION
  Report Type: 
  Country: None (occurrence: None)
  Receive Date: 20050118
  Receipt Date: 20040913
  Transmission Date: 20050727
  Serious: Yes (Hospitalization)
  Sender: FDA-Public Use
  Company Number: 380466

PATIENT
  Age: 42 Year
  Sex: Male
  Weight: 106.6 kg

DRUGS (21)
  1. ROCEPHIN [Suspect]
     Dosage: INTRAVENOUS
     Route: 042
     Dates: start: 20040828, end: 20040908
  2. LOVENOX [Suspect]
     Dosage: 2 PER DAY SUBCUTANEOUS
     Route: 058
     Dates: start: 20040829, end: 20040831
  3. VANCOMYCIN HYDROCHLORIDE [Concomitant]
  4. GENTAMICIN [Concomitant]
  5. NAFCILLIN (NAFCILLIN SODIUM) [Concomitant]
  6. CLINDAMYCIN (CLINDAMYCIN) [Concomitant]
  7. MEROPENEM (MEROPENEM) [Concomitant]
  8. LINEZOLID (LINEZOLID) [Concomitant]
  9. ACYCLOVIR [Concomitant]
  10. METRONIDAZOLE [Concomitant]
  11. DOXYCYCLINE [Concomitant]
  12. AMPICILLIN [Concomitant]
  13. FLUCONAZOLE [Concomitant]
  14. DOXEPIN HCL [Concomitant]
  15. LORATADINE [Concomitant]
  16. HYDROXYZINE (HYDROXYZINE HYDROCHLORIDE) [Concomitant]
  17. PHENOBARBITAL TAB [Concomitant]
  18. PROMETHEZINE HCL [Concomitant]
  19. OXAZEPAM [Concomitant]
  20. HEPARIN [Concomitant]
  21. UNKNOWN DRUG (GENERIC COMPONENT(S) UNKNOWN) [Concomitant]

REACTIONS (1)
  - THROMBOCYTHAEMIA [None]
